FAERS Safety Report 11359575 (Version 1)
Quarter: 2015Q3

REPORT INFORMATION
  Report Type: Spontaneous
  Country: US (occurrence: None)
  Receive Date: 20150807
  Receipt Date: 20150807
  Transmission Date: 20151125
  Serious: No
  Sender: FDA-Public Use
  Company Number: None

PATIENT
  Age: 85 Year
  Sex: Female
  Weight: .73 kg

DRUGS (7)
  1. VITAMIN B [Concomitant]
     Active Substance: VITAMIN B
  2. ARMOUR THYROID [Concomitant]
     Active Substance: THYROID, PORCINE\THYROID, UNSPECIFIED
  3. MAGNESIUM [Concomitant]
     Active Substance: MAGNESIUM
  4. FLUTIGASONE PROPIONATE [Concomitant]
  5. LUMIGAN [Concomitant]
     Active Substance: BIMATOPROST
  6. ZAROXOLYN [Suspect]
     Active Substance: METOLAZONE
     Indication: BLOOD PRESSURE MEASUREMENT
     Dosage: 1 PILL
     Route: 048
     Dates: start: 20150706, end: 20150717
  7. VITAMIN C [Concomitant]
     Active Substance: ASCORBIC ACID

REACTIONS (4)
  - Arthralgia [None]
  - Pain in extremity [None]
  - Myalgia [None]
  - Joint swelling [None]

NARRATIVE: CASE EVENT DATE: 20150717
